FAERS Safety Report 14712930 (Version 2)
Quarter: 2018Q2

REPORT INFORMATION
  Report Type: Spontaneous
  Country: CH (occurrence: CH)
  Receive Date: 20180404
  Receipt Date: 20180503
  Transmission Date: 20180711
  Serious: Yes (Other)
  Sender: FDA-Public Use
  Company Number: CH-ROCHE-1905447

PATIENT
  Sex: Female

DRUGS (2)
  1. AVASTIN [Suspect]
     Active Substance: BEVACIZUMAB
     Indication: MEDULLOBLASTOMA
     Dosage: 400 MG/16 ML
     Route: 042
  2. AVASTIN [Suspect]
     Active Substance: BEVACIZUMAB
     Dosage: 100 MG/4 ML (AROUND 8 CYCLES)
     Route: 042

REACTIONS (3)
  - Disease progression [Not Recovered/Not Resolved]
  - Intentional product use issue [Unknown]
  - Off label use [Unknown]

NARRATIVE: CASE EVENT DATE: 2018
